FAERS Safety Report 21341951 (Version 5)
Quarter: 2023Q4

REPORT INFORMATION
  Report Type: Report from Study
  Country: US (occurrence: US)
  Receive Date: 20220916
  Receipt Date: 20231114
  Transmission Date: 20240110
  Serious: Yes (Other)
  Sender: FDA-Public Use
  Company Number: US-NOVARTISTESTPH-NVSC2022US209298

PATIENT
  Age: 57 Year
  Sex: Female
  Weight: 85.05 kg

DRUGS (1)
  1. KISQALI [Suspect]
     Active Substance: RIBOCICLIB
     Indication: Breast cancer metastatic
     Dosage: 600 MG, QD
     Route: 048
     Dates: start: 20220727, end: 20220830

REACTIONS (15)
  - Neutropenia [Unknown]
  - Lip blister [Unknown]
  - Gingival blister [Unknown]
  - Chromaturia [Unknown]
  - Infection [Recovering/Resolving]
  - White blood cell count decreased [Recovered/Resolved]
  - Headache [Unknown]
  - Pyrexia [Unknown]
  - Influenza like illness [Unknown]
  - Ocular icterus [Unknown]
  - Vision blurred [Unknown]
  - Fatigue [Unknown]
  - Decreased appetite [Unknown]
  - Nausea [Unknown]
  - Vomiting [Unknown]

NARRATIVE: CASE EVENT DATE: 20220830
